FAERS Safety Report 13658415 (Version 1)
Quarter: 2017Q2

REPORT INFORMATION
  Report Type: Spontaneous
  Country: CH (occurrence: CH)
  Receive Date: 20170616
  Receipt Date: 20170616
  Transmission Date: 20170830
  Serious: Yes (Hospitalization)
  Sender: FDA-Public Use
  Company Number: CH-ROCHE-1923724

PATIENT
  Age: 34 Year
  Sex: Female
  Weight: 110 kg

DRUGS (9)
  1. LEFLUNOMID [Suspect]
     Active Substance: LEFLUNOMIDE
     Indication: RHEUMATOID ARTHRITIS
     Route: 048
     Dates: start: 2013, end: 201307
  2. PRIMPERAN [Concomitant]
     Active Substance: METOCLOPRAMIDE HYDROCHLORIDE
     Route: 048
  3. EUTHYROX [Concomitant]
     Active Substance: LEVOTHYROXINE SODIUM
     Route: 048
  4. NOVALGIN (SWITZERLAND) [Concomitant]
     Active Substance: DIPYRONE
     Route: 048
  5. LANSOPRAZOL [Concomitant]
     Active Substance: LANSOPRAZOLE
     Route: 048
  6. METFORMIN [Concomitant]
     Active Substance: METFORMIN HYDROCHLORIDE
     Route: 048
  7. DAFALGAN [Concomitant]
     Active Substance: ACETAMINOPHEN
     Route: 048
  8. ACTEMRA [Suspect]
     Active Substance: TOCILIZUMAB
     Indication: RHEUMATOID ARTHRITIS
     Route: 042
     Dates: start: 20151028, end: 20170308
  9. INSULIN [Concomitant]
     Active Substance: INSULIN NOS
     Route: 058

REACTIONS (2)
  - Soft tissue infection [Recovering/Resolving]
  - Fasciitis [Recovering/Resolving]

NARRATIVE: CASE EVENT DATE: 20170330
